FAERS Safety Report 20220536 (Version 1)
Quarter: 2021Q4

REPORT INFORMATION
  Report Type: Spontaneous
  Country: CN (occurrence: CN)
  Receive Date: 20211223
  Receipt Date: 20211223
  Transmission Date: 20220304
  Serious: Yes (Life-Threatening, Hospitalization)
  Sender: FDA-Public Use
  Company Number: CN-PUMA BIOTECHNOLOGY, INC.-2021-PUM-CN004856

PATIENT

DRUGS (1)
  1. NERLYNX [Suspect]
     Active Substance: NERATINIB
     Indication: Product used for unknown indication
     Dosage: 6 TABLETS, QD (1/DAY)
     Route: 048

REACTIONS (2)
  - Hypokalaemia [Recovering/Resolving]
  - Diarrhoea [Unknown]
